FAERS Safety Report 10059283 (Version 3)
Quarter: 2014Q2

REPORT INFORMATION
  Report Type: Spontaneous
  Country: US (occurrence: US)
  Receive Date: 20140404
  Receipt Date: 20140428
  Transmission Date: 20141212
  Serious: No
  Sender: FDA-Public Use
  Company Number: US-009507513-1404USA001494

PATIENT
  Sex: Female

DRUGS (1)
  1. NEXPLANON [Suspect]
     Indication: CONTRACEPTION
     Dosage: 68 MG, 1 ROD INSERTED EVERY THREE YEARS
     Route: 059
     Dates: start: 201401, end: 201403

REACTIONS (4)
  - Device difficult to use [Recovered/Resolved]
  - Depression [Unknown]
  - Device deployment issue [Recovered/Resolved]
  - Medical device complication [Recovered/Resolved]
